FAERS Safety Report 6406950-9 (Version None)
Quarter: 2009Q4

REPORT INFORMATION
  Report Type: 
  Country: None (occurrence: None)
  Receive Date: 20091020
  Receipt Date: 20091012
  Transmission Date: 20100525
  Serious: Yes (Other)
  Sender: FDA-Public Use
  Company Number: US-ELI_LILLY_AND_COMPANY-US200910003998

PATIENT
  Sex: Female

DRUGS (3)
  1. FORTEO [Suspect]
     Indication: OSTEOPOROSIS
     Dosage: 20 UG, DAILY (1/D)
     Dates: start: 20090501
  2. CALCIUM [Concomitant]
  3. TYLENOL [Concomitant]

REACTIONS (3)
  - BREAST CANCER [None]
  - BREAST CYST [None]
  - FIBROCYSTIC BREAST DISEASE [None]
